FAERS Safety Report 24338323 (Version 2)
Quarter: 2024Q3

REPORT INFORMATION
  Report Type: Spontaneous
  Country: US (occurrence: US)
  Receive Date: 20240919
  Receipt Date: 20240923
  Transmission Date: 20241016
  Serious: Yes (Other)
  Sender: TEVA
  Company Number: US-TEVA-VS-3242592

PATIENT
  Age: 74 Year
  Sex: Female

DRUGS (1)
  1. TRAZODONE HYDROCHLORIDE [Suspect]
     Active Substance: TRAZODONE HYDROCHLORIDE
     Indication: Insomnia
     Dosage: PRESCRIBED 1 TABLET A DAY,HALF A TABLET, SHE USE TO TAKE IT EVERYDAY THEN SHE TAKES IT AS NEEDED?...
     Route: 065
     Dates: start: 2021, end: 202409

REACTIONS (6)
  - Restless legs syndrome [Unknown]
  - Off label use [Unknown]
  - Wrong technique in product usage process [Unknown]
  - Dizziness [Unknown]
  - Drug ineffective [Unknown]
  - Nasal congestion [Unknown]

NARRATIVE: CASE EVENT DATE: 20240101
